FAERS Safety Report 18007833 (Version 1)
Quarter: 2020Q3

REPORT INFORMATION
  Report Type: Spontaneous
  Country: CN (occurrence: CN)
  Receive Date: 20200710
  Receipt Date: 20200710
  Transmission Date: 20201103
  Serious: Yes (Other)
  Sender: FDA-Public Use
  Company Number: CN-ROCHE-2638946

PATIENT
  Age: 66 Year
  Sex: Male

DRUGS (15)
  1. OXALIPLATIN. [Concomitant]
     Active Substance: OXALIPLATIN
     Indication: RECTAL CANCER
  2. XELODA [Suspect]
     Active Substance: CAPECITABINE
     Indication: RECTAL CANCER
     Route: 065
     Dates: start: 20160503
  3. AVASTIN [Suspect]
     Active Substance: BEVACIZUMAB
     Route: 065
     Dates: start: 20191204
  4. IRINOTECAN [Concomitant]
     Active Substance: IRINOTECAN
     Indication: RECTAL CANCER
     Route: 065
     Dates: start: 20161104
  5. FLUOROURACIL. [Concomitant]
     Active Substance: FLUOROURACIL
     Indication: RECTAL CANCER
     Route: 065
     Dates: start: 20181203
  6. IRINOTECAN [Concomitant]
     Active Substance: IRINOTECAN
     Route: 065
     Dates: start: 20181203
  7. GIMERACIL [Concomitant]
     Active Substance: GIMERACIL
     Indication: RECTAL CANCER
     Route: 065
     Dates: start: 20160302
  8. OTERACIL [Concomitant]
     Active Substance: OTERACIL
     Route: 065
     Dates: start: 20161104
  9. AVASTIN [Suspect]
     Active Substance: BEVACIZUMAB
     Indication: RECTAL CANCER
     Route: 065
     Dates: start: 20181203
  10. XELODA [Suspect]
     Active Substance: CAPECITABINE
     Route: 065
     Dates: start: 20191204
  11. TEGAFUR [Concomitant]
     Active Substance: TEGAFUR
     Indication: RECTAL CANCER
  12. CALCIUM FOLINATE [Concomitant]
     Active Substance: LEUCOVORIN CALCIUM
     Indication: RECTAL CANCER
     Route: 065
     Dates: start: 20181203
  13. REGORAFENIB. [Concomitant]
     Active Substance: REGORAFENIB
     Indication: RECTAL CANCER
     Route: 048
  14. OTERACIL [Concomitant]
     Active Substance: OTERACIL
     Indication: RECTAL CANCER
     Route: 065
     Dates: start: 20160302
  15. GIMERACIL [Concomitant]
     Active Substance: GIMERACIL
     Route: 065
     Dates: start: 20161104

REACTIONS (2)
  - Myelosuppression [Unknown]
  - Localised oedema [Unknown]
